FAERS Safety Report 5475563-8 (Version None)
Quarter: 2007Q4

REPORT INFORMATION
  Report Type: 
  Country: None (occurrence: None)
  Receive Date: 20071003
  Receipt Date: 20061031
  Transmission Date: 20080405
  Serious: No
  Sender: FDA-Public Use
  Company Number: US-MONARCH-K200601367

PATIENT

DRUGS (2)
  1. SONATA [Suspect]
     Indication: INSOMNIA
     Route: 048
  2. VITAMINS [Concomitant]

REACTIONS (1)
  - MIDDLE INSOMNIA [None]
